FAERS Safety Report 17641756 (Version 1)
Quarter: 2020Q2

REPORT INFORMATION
  Report Type: Spontaneous
  Country: AU (occurrence: AU)
  Receive Date: 20200408
  Receipt Date: 20200408
  Transmission Date: 20200713
  Serious: Yes (Death, Other)
  Sender: FDA-Public Use
  Company Number: AU-SUN PHARMACEUTICAL INDUSTRIES LTD-2020RR-243193

PATIENT
  Sex: Male

DRUGS (7)
  1. ATEZOLIZUMAB. [Suspect]
     Active Substance: ATEZOLIZUMAB
     Indication: NON-SMALL CELL LUNG CANCER METASTATIC
     Dosage: UNK
     Route: 065
  2. RANITIDINE. [Suspect]
     Active Substance: RANITIDINE
     Indication: CHRONIC GASTRITIS
     Dosage: 150 MILLIGRAM, BID
     Route: 065
  3. ERLOTINIB [Suspect]
     Active Substance: ERLOTINIB
     Indication: NON-SMALL CELL LUNG CANCER METASTATIC
     Dosage: UNK
     Route: 065
  4. CARBOPLATIN. [Suspect]
     Active Substance: CARBOPLATIN
     Indication: NON-SMALL CELL LUNG CANCER METASTATIC
     Dosage: UNK
     Route: 065
  5. ESOMEPRAZOLE. [Suspect]
     Active Substance: ESOMEPRAZOLE MAGNESIUM
     Indication: CHRONIC GASTRITIS
     Dosage: 40 MILLIGRAM, BID
     Route: 065
  6. BEVACIZUMAB. [Suspect]
     Active Substance: BEVACIZUMAB
     Indication: NON-SMALL CELL LUNG CANCER
     Dosage: UNK
     Route: 065
  7. PACLITAXEL. [Suspect]
     Active Substance: PACLITAXEL
     Indication: NON-SMALL CELL LUNG CANCER METASTATIC
     Dosage: UNK
     Route: 065

REACTIONS (4)
  - Therapeutic product effect incomplete [Unknown]
  - Gastrointestinal toxicity [Fatal]
  - Therapy partial responder [Unknown]
  - Disease progression [Unknown]
